FAERS Safety Report 19691382 (Version 1)
Quarter: 2021Q3

REPORT INFORMATION
  Report Type: Spontaneous
  Country: US (occurrence: US)
  Receive Date: 20210812
  Receipt Date: 20210812
  Transmission Date: 20211014
  Serious: No
  Sender: FDA-Public Use
  Company Number: US-PFIZER INC-2021550843

PATIENT
  Age: 18 Year
  Sex: Male

DRUGS (3)
  1. METHYLPREDNISOLONE. [Suspect]
     Active Substance: METHYLPREDNISOLONE
     Indication: TONSILLAR HYPERTROPHY
     Dosage: UNK
     Dates: start: 202105, end: 202105
  2. ZITHROMYCIN [Suspect]
     Active Substance: AZITHROMYCIN ANHYDROUS
     Indication: STREPTOCOCCUS TEST POSITIVE
     Dosage: UNK
     Dates: start: 202105, end: 202105
  3. AMOXICILLIN. [Suspect]
     Active Substance: AMOXICILLIN
     Indication: STREPTOCOCCUS TEST POSITIVE
     Dosage: UNK
     Dates: start: 2021, end: 2021

REACTIONS (1)
  - Drug ineffective [Unknown]
